FAERS Safety Report 7314474 (Version 2)
Quarter: 2014Q3

REPORT INFORMATION
  Report Type: Spontaneous
  Country: GB (occurrence: GB)
  Receive Date: 20100311
  Receipt Date: 20140725
  Transmission Date: 20150326
  Serious: Yes (Death, Other)
  Sender: FDA-Public Use
  Company Number: GB-RANBAXY-2010RR-32182

PATIENT
  Age: 64 Year
  Sex: Male
  Weight: 85 kg

DRUGS (6)
  1. CO-AMOXICLAV [Suspect]
     Active Substance: AMOXICILLIN\CLAVULANIC ACID
     Dosage: 250/125MG
     Route: 048
     Dates: start: 20091116, end: 20091123
  2. OMEPRAZOLE. [Concomitant]
     Active Substance: OMEPRAZOLE
     Indication: DYSPEPSIA
     Dosage: 20 MG, QD
     Route: 048
     Dates: start: 20100112, end: 20100116
  3. BENDROFLUMETHIAZIDE [Concomitant]
     Active Substance: BENDROFLUMETHIAZIDE
     Indication: HYPERTENSION
     Dosage: 2.5 MG, QD
     Route: 048
     Dates: start: 20080926
  4. CO-AMOXICLAV [Suspect]
     Active Substance: AMOXICILLIN\CLAVULANIC ACID
     Indication: LOWER RESPIRATORY TRACT INFECTION
     Dosage: 500/125MG
     Route: 048
     Dates: start: 20100107, end: 20100114
  5. CLARITHROMYCIN. [Concomitant]
     Active Substance: CLARITHROMYCIN
     Indication: PRODUCT USED FOR UNKNOWN INDICATION
     Dosage: 500 MG, BID
     Route: 048
     Dates: start: 20091112, end: 20091122
  6. PREDNISOLONE. [Concomitant]
     Active Substance: PREDNISOLONE
     Indication: ARTHROPATHY
     Dosage: 10 MG, QD
     Route: 048
     Dates: start: 20091203

REACTIONS (9)
  - Metabolic acidosis [Unknown]
  - Liver function test abnormal [Unknown]
  - Liver injury [Unknown]
  - Abdominal pain upper [Unknown]
  - Cardiac arrest [Fatal]
  - Hepatomegaly [Unknown]
  - Disseminated intravascular coagulation [Unknown]
  - Decreased appetite [Unknown]
  - Hyperkalaemia [Unknown]

NARRATIVE: CASE EVENT DATE: 20091229
